FAERS Safety Report 6221308-3 (Version None)
Quarter: 2009Q2

REPORT INFORMATION
  Report Type: 
  Country: None (occurrence: None)
  Receive Date: 20090608
  Receipt Date: 20090526
  Transmission Date: 20091009
  Serious: Yes (Hospitalization)
  Sender: FDA-Public Use
  Company Number: 005783

PATIENT
  Age: 71 Year
  Sex: Female
  Weight: 48.4 kg

DRUGS (9)
  1. PLETAL [Suspect]
     Indication: ANGINA PECTORIS
     Dosage: 100 MG, BID ORAL
     Route: 048
     Dates: start: 20070219, end: 20070915
  2. PLETAL [Suspect]
     Indication: ANGINA PECTORIS
     Dosage: 100 MG, BID ORAL
     Route: 048
     Dates: start: 20070929, end: 20071001
  3. URSO (URSODEOXYCHOLIC ACID) TABLET [Concomitant]
  4. NEO-MINOPHAGEN C (GLYCYRRHIZIC ACID, AMMONIUM SALT) INJECTION [Concomitant]
  5. NITOROL R (ISOSORBIDE DINITRATE) CAPSULE [Concomitant]
  6. NESGEN (TRIAZOLAM) TABLET [Concomitant]
  7. TAKEPRON (LANSOPRAZOLE) TABLET [Concomitant]
  8. BAYASPIRIN (ACETYLSALICYLIC ACID) TABLET [Concomitant]
  9. SIGMART (NICORANDIL) TABLET [Concomitant]

REACTIONS (5)
  - ANAEMIA [None]
  - COLITIS COLLAGENOUS [None]
  - DEHYDRATION [None]
  - DRUG INEFFECTIVE [None]
  - HYPOKALAEMIA [None]
